FAERS Safety Report 4652493-2 (Version None)
Quarter: 2005Q2

REPORT INFORMATION
  Report Type: 
  Country: None (occurrence: None)
  Receive Date: 20050504
  Receipt Date: 20050503
  Transmission Date: 20051028
  Serious: Yes (Hospitalization)
  Sender: FDA-Public Use
  Company Number: PHBS2005NL06254

PATIENT
  Age: 64 Year
  Sex: Male

DRUGS (10)
  1. DICLOFENAC SODIUM [Suspect]
  2. RABEPRAZOLE SODIUM [Suspect]
  3. ACETYL SALICYLIC ACID USP BAT [Suspect]
  4. DOXAZOSIN [Suspect]
  5. BUMETANIDE [Suspect]
  6. CELIPROLOL [Suspect]
  7. PRAVASTATIN [Suspect]
  8. ALLOPURINOL [Suspect]
  9. TEMAZEPAM [Suspect]
  10. TIOTROPIUM [Suspect]

REACTIONS (1)
  - GYNAECOMASTIA [None]
